FAERS Safety Report 11557503 (Version 2)
Quarter: 2015Q4

REPORT INFORMATION
  Report Type: Spontaneous
  Country: CH (occurrence: CH)
  Receive Date: 20150926
  Receipt Date: 20151026
  Transmission Date: 20160304
  Serious: Yes (Death, Other)
  Sender: FDA-Public Use
  Company Number: CH-009507513-1509CHE012228

PATIENT
  Age: 69 Year
  Sex: Male
  Weight: 78 kg

DRUGS (9)
  1. NOXAFIL [Suspect]
     Active Substance: POSACONAZOLE
     Indication: ANTIFUNGAL PROPHYLAXIS
     Dosage: 300 MG, QD
     Route: 048
     Dates: start: 20150709, end: 20150718
  2. MEROPENEM. [Concomitant]
     Active Substance: MEROPENEM
     Indication: LUNG INFILTRATION
     Dosage: 1 G, TID
     Route: 042
     Dates: start: 20150714, end: 20150718
  3. BACTRIM [Concomitant]
     Active Substance: SULFAMETHOXAZOLE\TRIMETHOPRIM
     Indication: LUNG INFILTRATION
     Dosage: 80/400MG, QID
     Route: 042
     Dates: start: 20150716, end: 20150718
  4. KONAKION [Concomitant]
     Active Substance: PHYTONADIONE
     Indication: PROPHYLAXIS
     Dosage: 10 MG, QD
     Route: 048
     Dates: start: 20150527, end: 20150718
  5. BELOC-ZOK [Concomitant]
     Active Substance: METOPROLOL SUCCINATE
     Dosage: 50 MG, QD
     Route: 048
     Dates: start: 20150715
  6. LASILACTONE [Concomitant]
     Active Substance: FUROSEMIDE\SPIRONOLACTONE
     Dosage: 50/20MG, QD
     Route: 048
     Dates: start: 20150715
  7. PANTOZOL [Concomitant]
     Active Substance: PANTOPRAZOLE SODIUM
     Indication: PROPHYLAXIS
     Dosage: 40 MG, BID
     Route: 048
     Dates: start: 20150629, end: 20150718
  8. INSULIN [Concomitant]
     Active Substance: INSULIN NOS
     Indication: DIABETES MELLITUS
     Dosage: UNK
     Route: 058
     Dates: start: 20150527, end: 20150718
  9. TAVANIC [Concomitant]
     Active Substance: LEVOFLOXACIN
     Indication: LUNG INFILTRATION
     Dosage: 500 MG, QD
     Route: 042
     Dates: start: 20150714, end: 20150718

REACTIONS (4)
  - Respiratory failure [Fatal]
  - Drug level decreased [Fatal]
  - Bronchopulmonary aspergillosis [Fatal]
  - Sepsis [Fatal]

NARRATIVE: CASE EVENT DATE: 20150716
